FAERS Safety Report 9855776 (Version 1)
Quarter: 2014Q1

REPORT INFORMATION
  Report Type: Spontaneous
  Country: NL (occurrence: NL)
  Receive Date: 20140130
  Receipt Date: 20140130
  Transmission Date: 20141002
  Serious: Yes (Hospitalization, Other)
  Sender: FDA-Public Use
  Company Number: NL-BAYER-2014-011202

PATIENT
  Age: 49 Year
  Sex: Male

DRUGS (18)
  1. CIPROFLOXACIN [Suspect]
     Indication: INFECTION PROPHYLAXIS
     Dosage: UNK
  2. CLOZAPINE [Interacting]
     Indication: SCHIZOPHRENIA
     Dosage: 300 MG, ONCE DUE TO ACCIDENTAL OVERDOSE
  3. CLOZAPINE [Interacting]
     Indication: SCHIZOPHRENIA
     Dosage: 75 MG/DAY ONCE THE NEXT DAY
  4. CLOZAPINE [Interacting]
     Indication: SCHIZOPHRENIA
     Dosage: 150 MG/DAY
  5. CLOZAPINE [Interacting]
     Indication: SCHIZOPHRENIA
     Dosage: 75 MG/DAY LOWERED DUE TO HIGH DRUG LEVELS
  6. CLOZAPINE [Interacting]
     Indication: SCHIZOPHRENIA
     Dosage: 125 MG/DAY
  7. MIDAZOLAM [Concomitant]
  8. OXAZEPAM [Concomitant]
  9. PANTOPRAZOLE [Concomitant]
  10. PROMETHAZINE [Concomitant]
  11. TAMSULOSIN [Concomitant]
  12. CLOMIPRAMINE [Concomitant]
     Dosage: 50 MG/DAY
  13. CLOMIPRAMINE [Concomitant]
     Dosage: 100 MG, UNK
  14. FORMOTEROL [Concomitant]
  15. TIOTROPIUM [Concomitant]
  16. MOLAXOLE [Concomitant]
  17. AMOXICILLIN [Concomitant]
     Indication: INFECTION PROPHYLAXIS
     Dosage: UNK
  18. METRONIDAZOLE [Concomitant]
     Indication: INFECTION PROPHYLAXIS
     Dosage: UNK

REACTIONS (4)
  - Toxicity to various agents [Recovered/Resolved]
  - Drug interaction [Recovered/Resolved]
  - Delirium [Recovered/Resolved]
  - Urinary tract infection [None]
